FAERS Safety Report 13844968 (Version 1)
Quarter: 2017Q3

REPORT INFORMATION
  Report Type: Spontaneous
  Country: FR (occurrence: FR)
  Receive Date: 20170808
  Receipt Date: 20170808
  Transmission Date: 20171127
  Serious: Yes (Hospitalization, Other)
  Sender: FDA-Public Use
  Company Number: FR-INDIVIOR LIMITED-INDV-103654-2017

PATIENT
  Sex: Male

DRUGS (1)
  1. SUBUTEX [Suspect]
     Active Substance: BUPRENORPHINE HYDROCHLORIDE
     Indication: PRODUCT USED FOR UNKNOWN INDICATION
     Dosage: 8MG, 2 IN 1 DAY
     Route: 042

REACTIONS (10)
  - Chest pain [Recovered/Resolved]
  - Hepatic failure [Recovered/Resolved]
  - Drug diversion [Unknown]
  - Systemic inflammatory response syndrome [Recovered/Resolved]
  - Pancytopenia [Recovered/Resolved]
  - Myalgia [Recovered/Resolved]
  - Pyrexia [Recovered/Resolved]
  - Hypotension [Recovered/Resolved]
  - Intentional product use issue [Unknown]
  - Drug dependence [Not Recovered/Not Resolved]
